FAERS Safety Report 10062453 (Version 1)
Quarter: 2014Q2

REPORT INFORMATION
  Report Type: Spontaneous
  Country: NZ (occurrence: NZ)
  Receive Date: 20140407
  Receipt Date: 20140407
  Transmission Date: 20141212
  Serious: Yes (Other)
  Sender: FDA-Public Use
  Company Number: NZ-PFIZER INC-2014089967

PATIENT
  Sex: Male

DRUGS (3)
  1. METHYLPREDNISOLONE [Suspect]
     Indication: BRONCHOPULMONARY ASPERGILLOSIS ALLERGIC
     Dosage: 1000 MG, DAILY (18MG/KG) FOR 3 DAYS, WITH AN INFUSION INTERVAL OF 4 WEEKS
     Route: 042
  2. PREDNISONE [Concomitant]
     Indication: BRONCHOPULMONARY ASPERGILLOSIS ALLERGIC
     Dosage: 30 MG, DAILY
     Route: 048
  3. ITRACONAZOLE [Concomitant]
     Indication: BRONCHOPULMONARY ASPERGILLOSIS ALLERGIC

REACTIONS (8)
  - Hypertension [Unknown]
  - Renal failure [Unknown]
  - Glucose tolerance impaired [Unknown]
  - Malaise [Unknown]
  - Growth retardation [Unknown]
  - Bone density decreased [Unknown]
  - Hyperglycaemia [Unknown]
  - Flushing [Unknown]
